FAERS Safety Report 9784986 (Version 1)
Quarter: 2013Q4

REPORT INFORMATION
  Report Type: Report from Study
  Country: US (occurrence: US)
  Receive Date: 20131227
  Receipt Date: 20131227
  Transmission Date: 20140711
  Serious: Yes (Other)
  Sender: FDA-Public Use
  Company Number: US-ROCHE-1323522

PATIENT
  Sex: Female

DRUGS (3)
  1. RITUXAN [Suspect]
     Indication: RHEUMATOID ARTHRITIS
     Route: 065
  2. ACTEMRA [Suspect]
     Indication: PRODUCT USED FOR UNKNOWN INDICATION
     Route: 065
  3. BENADRYL (UNITED STATES) [Concomitant]

REACTIONS (7)
  - Abortion spontaneous [Unknown]
  - Dry skin [Recovered/Resolved]
  - Chest discomfort [Recovered/Resolved]
  - Finger deformity [Not Recovered/Not Resolved]
  - Lung disorder [Unknown]
  - Drug hypersensitivity [Unknown]
  - Maternal exposure during pregnancy [Unknown]
